FAERS Safety Report 17660056 (Version 1)
Quarter: 2020Q2

REPORT INFORMATION
  Report Type: Other
  Country: DE (occurrence: DE)
  Receive Date: 20200413
  Receipt Date: 20200413
  Transmission Date: 20200713
  Serious: Yes (Hospitalization)
  Sender: FDA-Public Use
  Company Number: DE-GLENMARK PHARMACEUTICALS-2020GMK047248

PATIENT

DRUGS (4)
  1. INOVELON [Concomitant]
     Active Substance: RUFINAMIDE
     Indication: LENNOX-GASTAUT SYNDROME
     Dosage: 480 MILLIGRAM, BID (480-0-480 MG)
     Route: 048
     Dates: end: 20191211
  2. TOPIRAMAT [Suspect]
     Active Substance: TOPIRAMATE
     Indication: LENNOX-GASTAUT SYNDROME
     Dosage: 75 MILLIGRAM, BID (75-0-75 MG)
     Route: 048
  3. LAMOTRIGIN [Suspect]
     Active Substance: LAMOTRIGINE
     Indication: LENNOX-GASTAUT SYNDROME
     Dosage: 10 MILLIGRAM, BID (10-0-10 MG)
     Route: 048
  4. ORFIRIL [Suspect]
     Active Substance: VALPROATE SODIUM
     Indication: LENNOX-GASTAUT SYNDROME
     Dosage: 300 MILLIGRAM, BID (300-0-300 MG)
     Route: 048
     Dates: end: 20191212

REACTIONS (2)
  - Fall [Unknown]
  - Medication error [Unknown]

NARRATIVE: CASE EVENT DATE: 20191211
